FAERS Safety Report 25496391 (Version 3)
Quarter: 2025Q4

REPORT INFORMATION
  Report Type: Spontaneous
  Country: US (occurrence: US)
  Receive Date: 20250630
  Receipt Date: 20251121
  Transmission Date: 20260118
  Serious: Yes (Death, Other)
  Sender: SANOFI AVENTIS
  Company Number: US-SA-2025SA179114

PATIENT
  Age: 70 Year
  Sex: Female

DRUGS (10)
  1. DUPIXENT [Suspect]
     Active Substance: DUPILUMAB
     Indication: Urticaria
     Dosage: 600 MG, 1X
     Route: 058
     Dates: start: 20250505, end: 20250505
  2. DUPIXENT [Suspect]
     Active Substance: DUPILUMAB
     Dosage: 600 MG, 1X
     Route: 058
     Dates: start: 20250611, end: 20250611
  3. DUPIXENT [Suspect]
     Active Substance: DUPILUMAB
     Dosage: 300 MG, QOW
     Route: 058
     Dates: start: 202506, end: 2025
  4. DONEPEZIL [Concomitant]
     Active Substance: DONEPEZIL
     Dosage: UNK
  5. DULOXETINE [Concomitant]
     Active Substance: DULOXETINE
     Dosage: UNK
  6. HYDROXYZINE [Concomitant]
     Active Substance: HYDROXYZINE HYDROCHLORIDE
     Dosage: UNK
  7. LOSARTAN POTASSIUM [Concomitant]
     Active Substance: LOSARTAN POTASSIUM
     Dosage: UNK
  8. REPATHA [Concomitant]
     Active Substance: EVOLOCUMAB
     Dosage: UNK
  9. TIZANIDINE [Concomitant]
     Active Substance: TIZANIDINE
     Dosage: UNK
  10. Triamcinolon [Concomitant]
     Dosage: UNK

REACTIONS (3)
  - Death [Fatal]
  - Product use in unapproved indication [Unknown]
  - Extra dose administered [Unknown]

NARRATIVE: CASE EVENT DATE: 20250505
